FAERS Safety Report 8494805-8 (Version None)
Quarter: 2012Q3

REPORT INFORMATION
  Report Type: 
  Country: None (occurrence: None)
  Receive Date: 20120709
  Receipt Date: 20120628
  Transmission Date: 20120928
  Serious: Yes (Hospitalization)
  Sender: FDA-Public Use
  Company Number: FR-SANOFI-AVENTIS-2012SA046040

PATIENT
  Age: 65 Year
  Sex: Male

DRUGS (4)
  1. ESIDRIX [Suspect]
     Route: 065
     Dates: start: 20120601
  2. LASIX [Suspect]
     Route: 048
  3. XENETIX [Suspect]
     Indication: SCAN
     Dosage: DOSE:300 MILLIGRAM(S)/MILLILITRE
     Route: 042
     Dates: start: 20120510, end: 20120510
  4. ESIDRIX [Suspect]
     Route: 048
     Dates: end: 20120513

REACTIONS (2)
  - HYPERKALAEMIA [None]
  - RENAL FAILURE ACUTE [None]
